FAERS Safety Report 21059702 (Version 9)
Quarter: 2024Q1

REPORT INFORMATION
  Report Type: Spontaneous
  Country: US (occurrence: US)
  Receive Date: 20220708
  Receipt Date: 20240322
  Transmission Date: 20240410
  Serious: No
  Sender: FDA-Public Use
  Company Number: US-PFIZER INC-202101568299

PATIENT
  Age: 69 Year
  Sex: Female

DRUGS (7)
  1. EUCRISA [Suspect]
     Active Substance: CRISABOROLE
     Indication: Neurodermatitis
     Dosage: APPLY TO AFFECTED AREAS TWICE DAILY TO FLARES
     Route: 061
  2. EUCRISA [Suspect]
     Active Substance: CRISABOROLE
     Indication: Stomatitis
     Dosage: APPLY 1 TO 2 TIMES DAILY ON ARMS, LEG, LIP, HIP AND TRUNK
     Route: 061
  3. EUCRISA [Suspect]
     Active Substance: CRISABOROLE
     Indication: Cheilitis
     Dosage: APPLY TO AFFECTED AREAS ON FACE
     Route: 061
  4. MUPIROCIN [Concomitant]
     Active Substance: MUPIROCIN
     Dosage: UNK
  5. LEVOTHYROXINE [Concomitant]
     Active Substance: LEVOTHYROXINE\LEVOTHYROXINE SODIUM
     Dosage: UNK
  6. CYCLOBENZAPRINE [Concomitant]
     Active Substance: CYCLOBENZAPRINE
     Dosage: UNK
  7. CITALOPRAM [Concomitant]
     Active Substance: CITALOPRAM\CITALOPRAM HYDROBROMIDE
     Dosage: UNK

REACTIONS (5)
  - Condition aggravated [Unknown]
  - Rash [Recovered/Resolved]
  - Off label use [Unknown]
  - Off label use [Unknown]
  - Drug effective for unapproved indication [Unknown]
